FAERS Safety Report 10374687 (Version 1)
Quarter: 2014Q3

REPORT INFORMATION
  Report Type: Spontaneous
  Country: US (occurrence: None)
  Receive Date: 20140808
  Receipt Date: 20140808
  Transmission Date: 20150326
  Serious: Yes (Hospitalization)
  Sender: FDA-Public Use
  Company Number: None

PATIENT
  Age: 33 Year
  Sex: Female
  Weight: 73.94 kg

DRUGS (3)
  1. PRENATAL VITAMIN WITH FOLIC ACID [Concomitant]
  2. ACETAMINOPHEN. [Concomitant]
     Active Substance: ACETAMINOPHEN
  3. NICOTROL [Suspect]
     Active Substance: NICOTINE
     Indication: SMOKING CESSATION THERAPY
     Dosage: 4-10 CARTRIDGES DAILY
     Dates: start: 20140401

REACTIONS (2)
  - Exposure during pregnancy [None]
  - Premature baby [None]

NARRATIVE: CASE EVENT DATE: 20140728
